FAERS Safety Report 5449972-7 (Version None)
Quarter: 2007Q3

REPORT INFORMATION
  Report Type: 
  Country: None (occurrence: None)
  Receive Date: 20070912
  Receipt Date: 20070906
  Transmission Date: 20080115
  Serious: Yes (Hospitalization)
  Sender: FDA-Public Use
  Company Number: IT-BAYER-200715219GDS

PATIENT
  Age: 40 Year
  Sex: Female

DRUGS (7)
  1. CIPROFLOXACIN [Suspect]
     Indication: CROHN'S DISEASE
     Route: 065
  2. METRONIDAZOLE [Suspect]
     Indication: CROHN'S DISEASE
     Route: 065
  3. BUDESONIDE [Suspect]
     Indication: CROHN'S DISEASE
     Route: 065
  4. BUDESONIDE [Suspect]
     Route: 065
  5. MESALAZINE [Suspect]
     Indication: CROHN'S DISEASE
     Route: 065
  6. INFLIXIMAB [Concomitant]
     Indication: CROHN'S DISEASE
     Route: 065
  7. AZATHIOPRINE [Concomitant]
     Indication: CROHN'S DISEASE
     Route: 065

REACTIONS (8)
  - ASPARTATE AMINOTRANSFERASE INCREASED [None]
  - ASTHENIA [None]
  - BLOOD CREATINE PHOSPHOKINASE INCREASED [None]
  - HYPOKALAEMIA [None]
  - MUSCLE CONTRACTURE [None]
  - MUSCULAR WEAKNESS [None]
  - MYOGLOBIN BLOOD INCREASED [None]
  - RHABDOMYOLYSIS [None]
